FAERS Safety Report 11847222 (Version 1)
Quarter: 2015Q4

REPORT INFORMATION
  Report Type: Spontaneous
  Country: JP (occurrence: JP)
  Receive Date: 20151217
  Receipt Date: 20151217
  Transmission Date: 20160305
  Serious: Yes (Life-Threatening, Hospitalization)
  Sender: FDA-Public Use
  Company Number: JP-ASTELLAS-2015US036773

PATIENT
  Age: 75 Year
  Sex: Female

DRUGS (12)
  1. TARCEVA [Suspect]
     Active Substance: ERLOTINIB HYDROCHLORIDE
     Indication: LUNG ADENOCARCINOMA
     Route: 048
     Dates: start: 20150620, end: 20150825
  2. REBAMIPIDE [Concomitant]
     Active Substance: REBAMIPIDE
     Indication: PROPHYLAXIS
     Route: 065
     Dates: start: 20150620
  3. SENNOSIDE                          /00571901/ [Concomitant]
     Active Substance: SENNOSIDES A AND B
     Indication: CONSTIPATION
     Route: 048
  4. HIRUDOID                           /00723701/ [Suspect]
     Active Substance: PENTOSAN POLYSULFATE SODIUM
     Dosage: PROPER SPREADING
     Route: 003
     Dates: start: 20150814
  5. SUVOREXANT. [Concomitant]
     Active Substance: SUVOREXANT
     Indication: INSOMNIA
     Route: 048
     Dates: start: 20150911
  6. KENALOG [Concomitant]
     Active Substance: TRIAMCINOLONE ACETONIDE
     Indication: SJOGREN^S SYNDROME
     Dosage: PROPER QUANTITY, UNKNOWN FREQ.
     Route: 049
  7. TARCEVA [Suspect]
     Active Substance: ERLOTINIB HYDROCHLORIDE
     Route: 048
     Dates: start: 20150904, end: 20150924
  8. LIDOMEX [Concomitant]
     Active Substance: PREDNISOLONE VALERATE ACETATE
     Indication: PRODUCT USED FOR UNKNOWN INDICATION
     Dosage: UNK UNK, UNKNOWN FREQ.
     Route: 003
  9. POLAPREZINC [Concomitant]
     Active Substance: POLAPREZINC
     Indication: SJOGREN^S SYNDROME
     Route: 065
     Dates: start: 20150623
  10. THYRADIN-S [Concomitant]
     Active Substance: LEVOTHYROXINE
     Indication: HYPOTHYROIDISM
     Route: 048
  11. HIRUDOID /00723701/ [Suspect]
     Active Substance: PENTOSAN POLYSULFATE SODIUM
     Indication: PRODUCT USED FOR UNKNOWN INDICATION
     Dosage: PROPER SPREADING
     Route: 003
     Dates: start: 20150620
  12. BROTIZOLAM [Concomitant]
     Active Substance: BROTIZOLAM
     Indication: INSOMNIA
     Dosage: 0.25 MG, UNKNOWN FREQ.
     Route: 065

REACTIONS (7)
  - Rash [None]
  - Erythema [None]
  - Interstitial lung disease [None]
  - Lung disorder [Unknown]
  - Skin disorder [Recovering/Resolving]
  - Dry skin [None]
  - Atelectasis [None]

NARRATIVE: CASE EVENT DATE: 20150731
